FAERS Safety Report 5084101-3 (Version None)
Quarter: 2006Q3

REPORT INFORMATION
  Report Type: 
  Country: None (occurrence: None)
  Receive Date: 20060821
  Receipt Date: 20060807
  Transmission Date: 20061208
  Serious: Yes (Other)
  Sender: FDA-Public Use
  Company Number: PHBS2006BR12239

PATIENT
  Sex: Male

DRUGS (2)
  1. TRANSFUSIONS [Concomitant]
  2. DESFERAL [Suspect]
     Indication: BLOOD IRON INCREASED
     Route: 065

REACTIONS (1)
  - BONE MARROW FAILURE [None]
